FAERS Safety Report 8819989 (Version 1)
Quarter: 2012Q4

REPORT INFORMATION
  Report Type: 
  Country: IT (occurrence: IT)
  Receive Date: 20121001
  Receipt Date: 20121001
  Transmission Date: 20130627
  Serious: Yes (Other)
  Sender: FDA-Public Use
  Company Number: PHHY2012IT084184

PATIENT
  Age: 55 Year
  Sex: Female

DRUGS (2)
  1. NEBIVOLOL [Suspect]
     Indication: HYPERTENSION
     Route: 048
     Dates: start: 20120105, end: 20120112
  2. RAMIPRIL [Interacting]
     Indication: HYPERTENSION
     Dosage: 5 mg
     Route: 048
     Dates: start: 20111024, end: 20120112

REACTIONS (4)
  - Peripheral coldness [Recovering/Resolving]
  - Dyspnoea [Recovering/Resolving]
  - Dyspepsia [Recovering/Resolving]
  - Drug interaction [Unknown]
